FAERS Safety Report 6219293-3 (Version None)
Quarter: 2009Q2

REPORT INFORMATION
  Report Type: 
  Country: None (occurrence: None)
  Receive Date: 20090609
  Receipt Date: 20090529
  Transmission Date: 20091009
  Serious: Yes (Hospitalization)
  Sender: FDA-Public Use
  Company Number: SE-JNJFOC-20090601036

PATIENT
  Age: 50 Year
  Sex: Female

DRUGS (3)
  1. REMICADE [Suspect]
     Indication: RHEUMATOID ARTHRITIS
     Route: 042
  2. FOLACIN [Concomitant]
  3. BRUFEN RETARD [Concomitant]

REACTIONS (2)
  - BREAST CANCER [None]
  - THERAPEUTIC RESPONSE DECREASED [None]
